FAERS Safety Report 15835522 (Version 1)
Quarter: 2019Q1

REPORT INFORMATION
  Report Type: Spontaneous
  Country: US (occurrence: US)
  Receive Date: 20190117
  Receipt Date: 20190117
  Transmission Date: 20190417
  Serious: Yes (Disabling, Other)
  Sender: FDA-Public Use
  Company Number: US-STRIDES ARCOLAB LIMITED-2019SP000425

PATIENT
  Age: 71 Year
  Sex: Female

DRUGS (1)
  1. VANCOMYCIN [Suspect]
     Active Substance: VANCOMYCIN
     Indication: PRODUCT USED FOR UNKNOWN INDICATION
     Dosage: INTRACAMERAL VANCOMYCIN 0.25 MG AT BOTH SURGERIES.
     Route: 047

REACTIONS (6)
  - Blindness [Not Recovered/Not Resolved]
  - Optic atrophy [Recovered/Resolved]
  - Retinal vascular occlusion [Recovered/Resolved]
  - Retinal vasculitis [Recovered/Resolved]
  - Haemorrhagic vasculitis [Recovered/Resolved]
  - Type IV hypersensitivity reaction [Recovered/Resolved]
